FAERS Safety Report 19969793 (Version 1)
Quarter: 2021Q4

REPORT INFORMATION
  Report Type: Spontaneous
  Country: US (occurrence: US)
  Receive Date: 20211019
  Receipt Date: 20211019
  Transmission Date: 20220303
  Serious: Yes (Hospitalization)
  Sender: FDA-Public Use
  Company Number: US-HORIZON THERAPEUTICS-HZN-2021-002537

PATIENT
  Sex: Female

DRUGS (2)
  1. PROCYSBI [Suspect]
     Active Substance: CYSTEAMINE BITARTRATE
     Indication: Cystinosis
     Dosage: 450 MG, BID (ONE 300 MG PACKET AND TWO 75 MG PACKETS)
     Route: 048
  2. PROCYSBI [Suspect]
     Active Substance: CYSTEAMINE BITARTRATE
     Dosage: 450 MG, BID (ONE 300 MG PACKET AND TWO 75 MG PACKETS)
     Route: 048

REACTIONS (4)
  - Electrolyte imbalance [Unknown]
  - Pyrexia [Unknown]
  - Vomiting [Unknown]
  - Product dose omission issue [Unknown]
